FAERS Safety Report 4897619-0 (Version None)
Quarter: 2006Q1

REPORT INFORMATION
  Report Type: 
  Country: None (occurrence: None)
  Receive Date: 20060130
  Receipt Date: 20060130
  Transmission Date: 20060701
  Serious: Yes (Life-Threatening, Hospitalization)
  Sender: FDA-Public Use
  Company Number: None

PATIENT
  Age: 65 Year
  Sex: Female

DRUGS (1)
  1. BENAZEPRIL 20MG NOVARTIS [Suspect]
     Indication: ANGIONEUROTIC OEDEMA
     Dosage: 20MG DAILY PO
     Route: 048
     Dates: end: 20050925

REACTIONS (2)
  - DYSPNOEA [None]
  - SWOLLEN TONGUE [None]
